FAERS Safety Report 7442756-X (Version None)
Quarter: 2011Q2

REPORT INFORMATION
  Report Type: 
  Country: None (occurrence: None)
  Receive Date: 20110428
  Receipt Date: 20110419
  Transmission Date: 20111010
  Serious: Yes (Hospitalization, Other)
  Sender: FDA-Public Use
  Company Number: US-ASTRAZENECA-2010SE10638

PATIENT
  Age: 50 Year
  Sex: Female

DRUGS (2)
  1. NEXIUM [Suspect]
     Route: 048
  2. CRESTOR [Suspect]
     Route: 048

REACTIONS (10)
  - BRAIN OEDEMA [None]
  - AMNESIA [None]
  - CEREBRAL HAEMORRHAGE [None]
  - BRAIN INJURY [None]
  - HYSTERECTOMY [None]
  - NASOPHARYNGITIS [None]
  - HEADACHE [None]
  - DRUG DOSE OMISSION [None]
  - CEREBROVASCULAR ACCIDENT [None]
  - BLOOD CHOLESTEROL ABNORMAL [None]
